FAERS Safety Report 12470649 (Version 4)
Quarter: 2016Q4

REPORT INFORMATION
  Report Type: Report from Study
  Country: US (occurrence: US)
  Receive Date: 20160616
  Receipt Date: 20161103
  Transmission Date: 20170207
  Serious: Yes (Hospitalization, Disabling, Other)
  Sender: FDA-Public Use
  Company Number: PHEH2016US014183

PATIENT
  Sex: Male

DRUGS (1)
  1. COSENTYX [Suspect]
     Active Substance: SECUKINUMAB
     Indication: ANKYLOSING SPONDYLITIS
     Dosage: 150 MG, QMO
     Route: 058

REACTIONS (9)
  - Accidental exposure to product [Unknown]
  - Spinal pain [Not Recovered/Not Resolved]
  - Gait disturbance [Unknown]
  - Device use error [Unknown]
  - Asthenia [Unknown]
  - Back pain [Not Recovered/Not Resolved]
  - Disorientation [Unknown]
  - Fatigue [Unknown]
  - Injection site haemorrhage [Unknown]
